FAERS Safety Report 24208255 (Version 2)
Quarter: 2024Q3

REPORT INFORMATION
  Report Type: Spontaneous
  Country: PT (occurrence: PT)
  Receive Date: 20240814
  Receipt Date: 20240816
  Transmission Date: 20241016
  Serious: Yes (Other)
  Sender: AUROBINDO
  Company Number: PT-INFARMED-R202407-765

PATIENT
  Age: 66 Year
  Sex: Female
  Weight: 88.1 kg

DRUGS (1)
  1. AMOXICILLIN\CLAVULANIC ACID [Suspect]
     Active Substance: AMOXICILLIN\CLAVULANIC ACID
     Indication: Community acquired infection
     Dosage: 1200 MILLIGRAM
     Route: 042
     Dates: start: 20240725, end: 20240725

REACTIONS (3)
  - Flushing [Recovered/Resolved]
  - Abdominal pain [Recovered/Resolved]
  - Nausea [Recovered/Resolved]

NARRATIVE: CASE EVENT DATE: 20240725
